FAERS Safety Report 10185926 (Version 1)
Quarter: 2014Q2

REPORT INFORMATION
  Report Type: Spontaneous
  Country: US (occurrence: None)
  Receive Date: 20140520
  Receipt Date: 20140520
  Transmission Date: 20141212
  Serious: Yes (Hospitalization)
  Sender: FDA-Public Use
  Company Number: None

PATIENT
  Age: 55 Year
  Sex: Male

DRUGS (13)
  1. PACLITAXEL [Suspect]
  2. ACETAMINOPHEN [Concomitant]
  3. CALCIUM + VITAMIN D [Concomitant]
  4. IBUPROFEN [Concomitant]
  5. NYSTATIN [Concomitant]
  6. ONDANESTRON [Concomitant]
  7. OXYCODONE [Concomitant]
  8. PREDNISONE [Concomitant]
  9. PANTOPRAZOLE [Concomitant]
  10. SULFAMETHOXAZOLE-TRIMETHOPRIM [Concomitant]
  11. TACROLIMUS [Concomitant]
  12. WARFARIN [Concomitant]
  13. ZOLPIDEM [Concomitant]

REACTIONS (5)
  - Dyspnoea exertional [None]
  - Cough [None]
  - Interstitial lung disease [None]
  - Acute respiratory failure [None]
  - Infection [None]
